FAERS Safety Report 7341993-2 (Version None)
Quarter: 2011Q1

REPORT INFORMATION
  Report Type: 
  Country: None (occurrence: None)
  Receive Date: 20110309
  Receipt Date: 20110228
  Transmission Date: 20110831
  Serious: Yes (Hospitalization, Other)
  Sender: FDA-Public Use
  Company Number: US-ELI_LILLY_AND_COMPANY-US201007007225

PATIENT
  Sex: Female

DRUGS (13)
  1. FORTEO [Suspect]
     Indication: OSTEOPOROSIS
     Dosage: 20 UG, DAILY (1/D)
  2. FORTEO [Suspect]
     Dosage: 20 UG, DAILY (1/D)
  3. ACETAMINOPHEN AND HYDROCODONE BITARTRATE [Concomitant]
     Dosage: UNK, AS NEEDED
  4. VISTARIL [Concomitant]
     Dosage: UNK, UNKNOWN
     Route: 065
  5. ALPRAZOLAM [Concomitant]
     Dosage: 0.5 MG, 4/D
  6. HYDROXYZINE HCL [Concomitant]
     Dosage: 25 MG, 3/D
  7. PROMETHAZINE HCL [Concomitant]
     Dosage: UNK, AS NEEDED
  8. TRILIPIX [Concomitant]
     Dosage: UNK, UNKNOWN
     Route: 065
  9. LUNESTA [Concomitant]
     Dosage: 3 MG, DAILY (1/D)
  10. PROZAC [Concomitant]
     Dosage: UNK, UNKNOWN
     Route: 065
  11. AVINZA [Concomitant]
  12. LISINOPRIL [Concomitant]
     Dosage: UNK, DAILY (1/D)
  13. ERGOCALCIFEROL [Concomitant]
     Dosage: 5000 U, 3/W

REACTIONS (8)
  - FALL [None]
  - VOMITING [None]
  - MALAISE [None]
  - LACERATION [None]
  - MUSCLE INJURY [None]
  - ABDOMINAL DISCOMFORT [None]
  - OVERDOSE [None]
  - HOSPITALISATION [None]
